FAERS Safety Report 7742723-2 (Version None)
Quarter: 2011Q3

REPORT INFORMATION
  Report Type: 
  Country: None (occurrence: None)
  Receive Date: 20110908
  Receipt Date: 20110908
  Transmission Date: 20111222
  Serious: No
  Sender: FDA-Public Use
  Company Number: None

PATIENT
  Sex: Male

DRUGS (1)
  1. INCIVEK [Suspect]
     Dosage: TAKE 2 TABLETS (750MG) BY MOUTH EVERY 8 HOURS PO
     Route: 048

REACTIONS (3)
  - PAINFUL DEFAECATION [None]
  - ABNORMAL FAECES [None]
  - MUSCLE SPASMS [None]
